FAERS Safety Report 6210277-8 (Version None)
Quarter: 2009Q2

REPORT INFORMATION
  Report Type: 
  Country: None (occurrence: None)
  Receive Date: 20090601
  Receipt Date: 20090521
  Transmission Date: 20091009
  Serious: Yes (Death)
  Sender: FDA-Public Use
  Company Number: JP-PFIZER INC-2009202220

PATIENT

DRUGS (2)
  1. POLYMYXIN-B-SULFATE [Suspect]
     Dosage: UNK
     Route: 042
     Dates: start: 20010101, end: 20010501
  2. FUNGIZONE [Concomitant]

REACTIONS (3)
  - HYPOKALAEMIA [None]
  - INCORRECT ROUTE OF DRUG ADMINISTRATION [None]
  - MULTI-ORGAN FAILURE [None]
